FAERS Safety Report 8756447 (Version 2)
Quarter: 2012Q4

REPORT INFORMATION
  Report Type: 
  Country: CA (occurrence: CA)
  Receive Date: 20120828
  Receipt Date: 20120917
  Transmission Date: 20130627
  Serious: Yes (Hospitalization)
  Sender: FDA-Public Use
  Company Number: CA-BIOGENIDEC-2012BI033101

PATIENT
  Age: 63 Year
  Sex: Female

DRUGS (1)
  1. AVONEX [Suspect]
     Indication: MULTIPLE SCLEROSIS
     Route: 030
     Dates: start: 20001201

REACTIONS (6)
  - Myocardial infarction [Recovered/Resolved]
  - Hypertension [Unknown]
  - Weight decreased [Recovered/Resolved]
  - Injection site bruising [Not Recovered/Not Resolved]
  - Multiple sclerosis relapse [Unknown]
  - Diarrhoea [Recovered/Resolved]
